FAERS Safety Report 13156641 (Version 3)
Quarter: 2017Q1

REPORT INFORMATION
  Report Type: Spontaneous
  Country: CN (occurrence: CN)
  Receive Date: 20170126
  Receipt Date: 20170209
  Transmission Date: 20170428
  Serious: Yes (Hospitalization, Other)
  Sender: FDA-Public Use
  Company Number: CN-GILEAD-2017-0254426

PATIENT
  Age: 62 Year
  Sex: Male

DRUGS (9)
  1. HEPTODIN [Suspect]
     Active Substance: LAMIVUDINE
     Indication: HEPATITIS B
     Dosage: UNK UNKNOWN, UNK
     Route: 048
  2. HEPSERA [Suspect]
     Active Substance: ADEFOVIR DIPIVOXIL
     Indication: HEPATITIS B
     Dosage: UNK UNKNOWN, UNK
     Route: 048
  3. VIREAD [Suspect]
     Active Substance: TENOFOVIR DISOPROXIL FUMARATE
     Indication: HEPATITIS B
     Dosage: 300 MG, QD
     Route: 048
     Dates: start: 20151001, end: 20151006
  4. HEPTODIN [Suspect]
     Active Substance: LAMIVUDINE
     Dosage: UNK
     Route: 048
  5. TIENAM [Suspect]
     Active Substance: CILASTATIN SODIUM\IMIPENEM
     Indication: PRODUCT USED FOR UNKNOWN INDICATION
     Dosage: UNK UNKNOWN, UNK
     Route: 065
  6. HEPTODIN [Suspect]
     Active Substance: LAMIVUDINE
     Dosage: UNK UNKNOWN, UNK
     Route: 048
     Dates: start: 20151007
  7. DEXAMETHASONE. [Suspect]
     Active Substance: DEXAMETHASONE
     Indication: PRODUCT USED FOR UNKNOWN INDICATION
     Dosage: UNK UNKNOWN, UNK
     Route: 065
  8. HEPSERA [Suspect]
     Active Substance: ADEFOVIR DIPIVOXIL
     Dosage: UNK UNKNOWN, UNK
     Route: 048
     Dates: start: 20151007
  9. HEPSERA [Suspect]
     Active Substance: ADEFOVIR DIPIVOXIL
     Dosage: UNK
     Route: 048

REACTIONS (9)
  - Drug resistance [Unknown]
  - Splenomegaly [Unknown]
  - Ascites [Unknown]
  - Alanine aminotransferase increased [Unknown]
  - Aspartate aminotransferase increased [Unknown]
  - Hepatic cirrhosis [Unknown]
  - Blood bilirubin increased [Unknown]
  - Portal hypertension [Unknown]
  - Jaundice [Unknown]

NARRATIVE: CASE EVENT DATE: 20150916
